FAERS Safety Report 14648398 (Version 2)
Quarter: 2018Q1

REPORT INFORMATION
  Report Type: Report from Study
  Country: ES (occurrence: ES)
  Receive Date: 20180316
  Receipt Date: 20180322
  Transmission Date: 20180509
  Serious: Yes (Other)
  Sender: FDA-Public Use
  Company Number: ES-EISAI MEDICAL RESEARCH-EC-2018-037131

PATIENT
  Age: 51 Year
  Sex: Female
  Weight: 68.5 kg

DRUGS (8)
  1. ASTRALE [Concomitant]
  2. ERIBULIN [Suspect]
     Active Substance: ERIBULIN
     Indication: BREAST CANCER METASTATIC
     Route: 041
     Dates: start: 20180222
  3. ORAMORPH [Concomitant]
     Active Substance: MORPHINE SULFATE
  4. ENANTYUM [Concomitant]
     Active Substance: DEXKETOPROFEN TROMETAMOL
  5. DUROGESIC [Concomitant]
     Active Substance: FENTANYL
  6. NEURONTIN [Concomitant]
     Active Substance: GABAPENTIN
  7. PQR309 [Suspect]
     Active Substance: INVESTIGATIONAL PRODUCT
     Indication: BREAST CANCER METASTATIC
     Route: 048
     Dates: start: 20180301, end: 20180308
  8. PQR309 [Suspect]
     Active Substance: INVESTIGATIONAL PRODUCT
     Route: 048
     Dates: start: 20180315

REACTIONS (1)
  - Neutropenia [Recovered/Resolved]

NARRATIVE: CASE EVENT DATE: 20180308
